FAERS Safety Report 6589958-2 (Version None)
Quarter: 2010Q1

REPORT INFORMATION
  Report Type: 
  Country: None (occurrence: None)
  Receive Date: 20100219
  Receipt Date: 20100210
  Transmission Date: 20100710
  Serious: Yes (Hospitalization)
  Sender: FDA-Public Use
  Company Number: US-ALEXION-A201000077

PATIENT
  Sex: Male

DRUGS (21)
  1. SOLIRIS [Suspect]
     Indication: PAROXYSMAL NOCTURNAL HAEMOGLOBINURIA
     Dosage: QW
     Route: 042
     Dates: start: 20071201
  2. SOLIRIS [Suspect]
     Dosage: 900 MG, Q2W
     Route: 042
  3. FLOMAX [Concomitant]
     Dosage: 0.4 MG, QD
  4. PROSCAR [Concomitant]
     Dosage: 5 MG, QD
  5. TENORMIN [Concomitant]
     Dosage: 50 MG, QD
  6. SYNTHROID [Concomitant]
     Dosage: 75 UG, QD
  7. LIBRIUM                            /00011501/ [Concomitant]
     Dosage: 10 MG, QD, PRN
  8. FOLATE [Concomitant]
     Dosage: 1 MG, QD
  9. GLUCOTROL [Concomitant]
     Dosage: 5 MG, QD
  10. VITAMIN B12                        /00056201/ [Concomitant]
     Dosage: 1 MG, QD
  11. EPOGEN [Concomitant]
     Dosage: WEEKLY
  12. EPOGEN [Concomitant]
     Dosage: 60000 IU, UNK
     Dates: start: 20100126, end: 20100126
  13. PREDNISONE [Concomitant]
     Dosage: 20 MG, QD (PLANS TO TAPER AS TOLERATED)
  14. LASIX [Concomitant]
     Dosage: 40 MG, QD
  15. MILK OF MAGNESIA TAB [Concomitant]
     Dosage: 2 TABLESPOONS QHS, PRN
  16. COVERA-HS [Concomitant]
     Dosage: 180 MG, QD (QHS)
  17. DARVOCET-N 100 [Concomitant]
     Dosage: 1-2 Q6H PRN
  18. CALCIUM WITH VITAMIN D             /00944201/ [Concomitant]
     Dosage: UNK
  19. ACTONEL [Concomitant]
     Dosage: 150 MG, ONCE PER MONTH
  20. OXYGEN [Concomitant]
     Dosage: 2 L, QHS PRN
  21. ALBUTEROL [Concomitant]
     Dosage: 2 PUFFS QID

REACTIONS (2)
  - PNEUMONIA STREPTOCOCCAL [None]
  - STREPTOCOCCAL SEPSIS [None]
